FAERS Safety Report 9252941 (Version 1)
Quarter: 2013Q1

REPORT INFORMATION
  Report Type: Spontaneous
  Country: US (occurrence: None)
  Receive Date: 20130305
  Receipt Date: 20130305
  Transmission Date: 20140127
  Serious: Yes (Hospitalization)
  Sender: FDA-Public Use
  Company Number: 163-201880-12090907

PATIENT
  Age: 80 Year
  Sex: Female

DRUGS (4)
  1. REVLIMID [Suspect]
     Indication: MYELODYSPLASTIC SYNDROME
     Dosage: 5MG, 14 IN 14 D, PO
     Route: 048
     Dates: start: 20120824
  2. BIOTENE DRY MOUTH (UNKNOWN) [Concomitant]
  3. VISCOUS (LIDOCAINE HYDROCHLORIDE) [Concomitant]
  4. CIPROFLOXACIN-CIPROFLOXACIN HCL(CIPROFLOXACIN) [Concomitant]

REACTIONS (1)
  - Malaise [None]
